FAERS Safety Report 4616506-6 (Version None)
Quarter: 2005Q1

REPORT INFORMATION
  Report Type: 
  Country: None (occurrence: None)
  Receive Date: 20050318
  Receipt Date: 20050311
  Transmission Date: 20050727
  Serious: Yes (Hospitalization)
  Sender: FDA-Public Use
  Company Number: OSCN-PR--05035-0078

PATIENT
  Age: 48 Year
  Sex: Female

DRUGS (1)
  1. OMNISCAN [Suspect]
     Indication: ASTHENIA
     Dosage: 14 ML, SINGLE DOSE, I.V..
     Route: 042
     Dates: start: 20050310, end: 20050310

REACTIONS (9)
  - ASTHENIA [None]
  - BRAIN NEOPLASM [None]
  - CEREBRAL THROMBOSIS [None]
  - FACIAL PALSY [None]
  - GAIT DISTURBANCE [None]
  - HEADACHE [None]
  - HEMIPARESIS [None]
  - POST PROCEDURAL COMPLICATION [None]
  - VOMITING [None]
